FAERS Safety Report 24670877 (Version 1)
Quarter: 2024Q4

REPORT INFORMATION
  Report Type: Report from Study
  Country: US (occurrence: US)
  Receive Date: 20241127
  Receipt Date: 20241127
  Transmission Date: 20250115
  Serious: Yes (Hospitalization)
  Sender: AMGEN
  Company Number: US-AMGEN-USASL2024231616

PATIENT
  Age: 59 Year
  Sex: Male

DRUGS (10)
  1. VECTIBIX [Suspect]
     Active Substance: PANITUMUMAB
     Indication: Product used for unknown indication
     Dosage: 100 MILLIGRAM (VECTIBIX (PANITUMUMAB) 100 MG, 5 ML (20 MG/ML) SINGLE-USE VIAL (ACTIVE)
     Route: 040
  2. VECTIBIX [Suspect]
     Active Substance: PANITUMUMAB
     Dosage: 400 MILLIGRAM (400 MG/20MG/ML)
     Route: 040
     Dates: start: 20240912, end: 20240912
  3. VECTIBIX [Suspect]
     Active Substance: PANITUMUMAB
     Dosage: 400 MILLIGRAM (400 MG/20MG/ML)
     Route: 040
     Dates: start: 20240926, end: 20240926
  4. VECTIBIX [Suspect]
     Active Substance: PANITUMUMAB
     Dosage: 400 MILLIGRAM (400 MG/20MG/ML)
     Route: 040
     Dates: start: 20241024, end: 20241024
  5. VECTIBIX [Suspect]
     Active Substance: PANITUMUMAB
     Dosage: 400 MILLIGRAM (400 MG/20MG/ML)
     Route: 040
     Dates: start: 20241107, end: 20241107
  6. VECTIBIX [Suspect]
     Active Substance: PANITUMUMAB
     Dosage: 400 MILLIGRAM (400 MG/20MG/ML)
     Route: 040
     Dates: start: 20241108, end: 20241108
  7. OCTREOTIDE ACETATE [Concomitant]
     Active Substance: OCTREOTIDE ACETATE
     Dosage: UNK
     Route: 030
     Dates: start: 20240912, end: 20241010
  8. MAGNESIUM SULFATE [Concomitant]
     Active Substance: MAGNESIUM SULFATE
     Dosage: UNK
     Route: 040
     Dates: start: 20240926, end: 20241024
  9. INFED [Concomitant]
     Active Substance: IRON DEXTRAN
     Dosage: 100 MILLIGRAM
     Route: 040
     Dates: start: 20241024
  10. SODIUM CHLORIDE [Concomitant]
     Active Substance: SODIUM CHLORIDE
     Dosage: 100 MILLILITER
     Route: 040
     Dates: start: 20240912, end: 20241107

REACTIONS (9)
  - Oedema peripheral [Unknown]
  - Blood glucose increased [Unknown]
  - Vomiting [Unknown]
  - Nausea [Unknown]
  - Diarrhoea [Unknown]
  - Abdominal discomfort [Unknown]
  - Flushing [Unknown]
  - Hypotension [Unknown]
  - Faeces discoloured [Unknown]

NARRATIVE: CASE EVENT DATE: 20240912
